FAERS Safety Report 13717633 (Version 3)
Quarter: 2017Q3

REPORT INFORMATION
  Report Type: Spontaneous
  Country: PT (occurrence: PT)
  Receive Date: 20170705
  Receipt Date: 20170802
  Transmission Date: 20171127
  Serious: Yes (Hospitalization, Other)
  Sender: FDA-Public Use
  Company Number: PT-GLAXOSMITHKLINE-PT2017GSK102023

PATIENT
  Age: 54 Year
  Sex: Female
  Weight: 60 kg

DRUGS (6)
  1. PREDNISOLONE. [Concomitant]
     Active Substance: PREDNISOLONE
     Indication: SYSTEMIC LUPUS ERYTHEMATOSUS
     Dosage: 15 MG, UNK
     Route: 048
     Dates: start: 20151002
  2. WARFARIN [Concomitant]
     Active Substance: WARFARIN
     Indication: ANTIPHOSPHOLIPID SYNDROME
     Dosage: UNK
     Route: 048
     Dates: start: 20150930
  3. BENLYSTA [Suspect]
     Active Substance: BELIMUMAB
     Indication: SYSTEMIC LUPUS ERYTHEMATOSUS
     Dosage: 10 MG/KG, UNK
     Route: 042
     Dates: start: 20170616
  4. BENLYSTA [Suspect]
     Active Substance: BELIMUMAB
     Indication: ANTIPHOSPHOLIPID SYNDROME
  5. PLAQUENIL [Concomitant]
     Active Substance: HYDROXYCHLOROQUINE SULFATE
     Indication: SYSTEMIC LUPUS ERYTHEMATOSUS
     Dosage: 400 MG, UNK
     Route: 048
     Dates: start: 20150930
  6. IMURAN [Concomitant]
     Active Substance: AZATHIOPRINE
     Indication: SYSTEMIC LUPUS ERYTHEMATOSUS
     Dosage: 50 MG, UNK
     Route: 048
     Dates: start: 20151119

REACTIONS (13)
  - Aura [Unknown]
  - Loss of consciousness [Unknown]
  - Disorientation [Unknown]
  - Pyrexia [Unknown]
  - Brain neoplasm [Unknown]
  - Seizure [Recovered/Resolved]
  - Headache [Unknown]
  - Vasogenic cerebral oedema [Unknown]
  - Hypocoagulable state [Unknown]
  - Lacunar infarction [Unknown]
  - Arachnoid cyst [Unknown]
  - Somnolence [Unknown]
  - Computerised tomogram abnormal [Unknown]

NARRATIVE: CASE EVENT DATE: 20170626
